FAERS Safety Report 5067011-7 (Version None)
Quarter: 2006Q3

REPORT INFORMATION
  Report Type: 
  Country: None (occurrence: None)
  Receive Date: 20060801
  Receipt Date: 20050728
  Transmission Date: 20061208
  Serious: Yes (Hospitalization)
  Sender: FDA-Public Use
  Company Number: CA-SANOFI-SYNTHELABO-F01200501352

PATIENT
  Sex: Female

DRUGS (7)
  1. OXALIPLATIN [Suspect]
     Indication: COLORECTAL CANCER METASTATIC
     Route: 042
     Dates: start: 20050505
  2. LEUCOVORIN CALCIUM [Suspect]
     Route: 042
     Dates: start: 20050505
  3. FLUOROURACIL [Suspect]
     Dosage: 490 MG BOLUS + 730 MG CONTINUOUS INFUSION (44 HOURS) Q2W
     Route: 040
     Dates: start: 20050505
  4. MAXERAN [Concomitant]
  5. SOFLAX [Concomitant]
  6. FRAGMIN [Concomitant]
  7. DILAUDID [Concomitant]

REACTIONS (5)
  - ABDOMINAL ABSCESS [None]
  - CITROBACTER INFECTION [None]
  - DIARRHOEA [None]
  - ENTEROCOCCAL INFECTION [None]
  - ENTEROCUTANEOUS FISTULA [None]
